FAERS Safety Report 19653648 (Version 4)
Quarter: 2022Q3

REPORT INFORMATION
  Report Type: Report from Study
  Country: US (occurrence: US)
  Receive Date: 20210803
  Receipt Date: 20220802
  Transmission Date: 20221026
  Serious: Yes (Hospitalization)
  Sender: FDA-Public Use
  Company Number: US-PFIZER INC-202100924190

PATIENT
  Age: 5 Year
  Sex: Male
  Weight: 19.1 kg

DRUGS (14)
  1. TEMSIROLIMUS [Suspect]
     Active Substance: TEMSIROLIMUS
     Indication: Embryonal rhabdomyosarcoma
     Dosage: 15MG/M2 OR PER PROTOCOL ON D1,8,15 OF CYCLES 1-4
     Dates: start: 20200911
  2. TEMSIROLIMUS [Suspect]
     Active Substance: TEMSIROLIMUS
     Dosage: 15MG/M2 OR PER PROTOCOL ON D1,8,15 OF C8-10
     Dates: start: 20210621
  3. VINCRISTINE SULFATE [Suspect]
     Active Substance: VINCRISTINE SULFATE
     Indication: Embryonal rhabdomyosarcoma
     Dosage: 1.5MG/M2 OR PER PROTOCOL ON D1 OF C5+10 AND D1,8 OF C6,7,9 AND D1,8,15 OF CYCLES 1-4
     Dates: start: 20200911
  4. VINCRISTINE SULFATE [Suspect]
     Active Substance: VINCRISTINE SULFATE
     Dosage: 1.5MG/M2 OR PER PROTOCOL ON D1 OF C5+10 AND D1,8 OF C6,7,9 AND D1,8,15 OF C8
     Dates: start: 20210621
  5. IRINOTECAN HYDROCHLORIDE [Suspect]
     Active Substance: IRINOTECAN HYDROCHLORIDE
     Indication: Embryonal rhabdomyosarcoma
     Dosage: 50MG/M2 OR PER PROTOCOL ON D1-5 OF C2+4
     Dates: start: 20200911
  6. IRINOTECAN HYDROCHLORIDE [Suspect]
     Active Substance: IRINOTECAN HYDROCHLORIDE
     Dosage: 50MG/M2 FOR PER PROTOCOL ON D1-5 OF C6,7,9
  7. DACTINOMYCIN [Suspect]
     Active Substance: DACTINOMYCIN
     Indication: Embryonal rhabdomyosarcoma
     Dosage: 0.05MG/KG OR PER PROTOCOL ON D1 OF C1+3
     Dates: start: 20200911
  8. DACTINOMYCIN [Suspect]
     Active Substance: DACTINOMYCIN
     Dosage: 0.05MG/KG OR PER PROTOCOL ON D1 OF C5,8,10
     Dates: start: 20210621
  9. CYCLOPHOSPHAMIDE [Suspect]
     Active Substance: CYCLOPHOSPHAMIDE
     Indication: Embryonal rhabdomyosarcoma
     Dosage: 1200MG/M2 OR PER PROTOCOL ON D1 OF C1+3
     Dates: start: 20200911
  10. CYCLOPHOSPHAMIDE [Suspect]
     Active Substance: CYCLOPHOSPHAMIDE
     Dosage: 1200MG/M2 OR PER PROTOCOL ON D1 OF C5,8,10
     Dates: start: 20210621
  11. PEGFILGRASTIM [Concomitant]
     Active Substance: PEGFILGRASTIM
     Dosage: UNK
  12. ONDANSETRON [Concomitant]
     Active Substance: ONDANSETRON
     Dosage: UNK
  13. PENTAMIDINE ISETHIONATE [Concomitant]
     Active Substance: PENTAMIDINE ISETHIONATE
     Dosage: UNK
  14. POLYETHYLENE GLYCOLS [Concomitant]
     Active Substance: POLYETHYLENE GLYCOLS
     Dosage: UNK

REACTIONS (1)
  - Infective myositis [Recovering/Resolving]

NARRATIVE: CASE EVENT DATE: 20210701
